FAERS Safety Report 7859873-2 (Version None)
Quarter: 2011Q4

REPORT INFORMATION
  Report Type: 
  Country: None (occurrence: None)
  Receive Date: 20111027
  Receipt Date: 20111024
  Transmission Date: 20120403
  Serious: Yes (Other)
  Sender: FDA-Public Use
  Company Number: US-BAYER-2011-103000

PATIENT
  Sex: Female
  Weight: 108.39 kg

DRUGS (4)
  1. XYZAL [Concomitant]
     Dosage: 5 MG, UNK
  2. ZOLOFT [Concomitant]
     Dosage: 25 MG, UNK
  3. PREDNISONE [Concomitant]
     Dosage: 5 MG, UNK
  4. BETASERON [Suspect]
     Dosage: 8 MIU, QOD
     Route: 058

REACTIONS (4)
  - MULTIPLE SCLEROSIS RELAPSE [None]
  - SPEECH DISORDER [None]
  - CENTRAL NERVOUS SYSTEM LESION [None]
  - VIITH NERVE PARALYSIS [None]
